FAERS Safety Report 12525586 (Version 2)
Quarter: 2016Q3

REPORT INFORMATION
  Report Type: Spontaneous
  Country: US (occurrence: US)
  Receive Date: 20160705
  Receipt Date: 20160929
  Transmission Date: 20161109
  Serious: No
  Sender: FDA-Public Use
  Company Number: US-JNJFOC-20160521674

PATIENT
  Sex: Female

DRUGS (1)
  1. ACETAMINOPHEN WITH CODEINE 3 [Suspect]
     Active Substance: ACETAMINOPHEN\CODEINE PHOSPHATE
     Indication: BACK PAIN
     Dosage: 4 WEEKS AGO
     Route: 065
     Dates: start: 2016

REACTIONS (4)
  - Drug ineffective [Unknown]
  - Peripheral swelling [Unknown]
  - Gastric disorder [Unknown]
  - Insomnia [Unknown]
